FAERS Safety Report 5892783-9 (Version None)
Quarter: 2008Q3

REPORT INFORMATION
  Report Type: 
  Country: None (occurrence: None)
  Receive Date: 20080922
  Receipt Date: 20080922
  Transmission Date: 20090109
  Serious: No
  Sender: FDA-Public Use
  Company Number: None

PATIENT
  Age: 75 Year
  Sex: Female
  Weight: 67.1324 kg

DRUGS (1)
  1. PACERONE [Suspect]
     Indication: ATRIAL FIBRILLATION
     Dosage: ONE DAILY
     Dates: start: 20040720, end: 20080717

REACTIONS (1)
  - LUNG DISORDER [None]
